FAERS Safety Report 10930936 (Version 1)
Quarter: 2015Q1

REPORT INFORMATION
  Report Type: Spontaneous
  Country: US (occurrence: US)
  Receive Date: 20150319
  Receipt Date: 20150319
  Transmission Date: 20150721
  Serious: No
  Sender: FDA-Public Use
  Company Number: US-BAUSCH-BL-2014-008496

PATIENT
  Sex: Female
  Weight: 61.29 kg

DRUGS (2)
  1. RETIN-A [Suspect]
     Active Substance: TRETINOIN
     Indication: SKIN WRINKLING
     Dosage: APPLIED TO FOREHEAD, CHEEKS, AND CHIN NO MORE THAN TWICE A WEEK IN WINTER
     Route: 061
     Dates: start: 1990
  2. RETIN-A [Suspect]
     Active Substance: TRETINOIN
     Indication: SKIN DISCOLOURATION

REACTIONS (4)
  - Application site pain [Recovered/Resolved]
  - Application site pruritus [Recovered/Resolved]
  - Drug ineffective [Not Recovered/Not Resolved]
  - Skin exfoliation [Recovered/Resolved]
